FAERS Safety Report 7089060-X (Version None)
Quarter: 2010Q4

REPORT INFORMATION
  Report Type: 
  Country: None (occurrence: None)
  Receive Date: 20101108
  Receipt Date: 20101101
  Transmission Date: 20110411
  Serious: Yes (Life-Threatening, Hospitalization)
  Sender: FDA-Public Use
  Company Number: B0678379A

PATIENT
  Sex: Male

DRUGS (7)
  1. AVOLVE [Suspect]
     Indication: BENIGN PROSTATIC HYPERPLASIA
     Dosage: .5MG PER DAY
     Route: 048
     Dates: start: 20091230, end: 20100921
  2. SILODOSIN [Concomitant]
     Dosage: 8MG PER DAY
     Route: 048
     Dates: start: 20091222, end: 20100921
  3. EVIPROSTAT [Concomitant]
     Dosage: 3IUAX PER DAY
     Route: 048
     Dates: start: 20091222, end: 20100921
  4. BESACOLIN [Concomitant]
     Dosage: 20MG PER DAY
     Route: 048
     Dates: start: 20100406, end: 20100921
  5. UBRETID [Concomitant]
     Dosage: 5MG PER DAY
     Route: 048
     Dates: start: 20100209, end: 20100323
  6. FLOMOX [Concomitant]
     Dosage: 300MG PER DAY
     Route: 048
     Dates: start: 20100106, end: 20100111
  7. CEFACLOR [Concomitant]
     Dosage: 750MG PER DAY
     Route: 048
     Dates: start: 20100126, end: 20100130

REACTIONS (1)
  - MYOCARDIAL INFARCTION [None]
